FAERS Safety Report 19489223 (Version 1)
Quarter: 2021Q3

REPORT INFORMATION
  Report Type: Spontaneous
  Country: DE (occurrence: DE)
  Receive Date: 20210703
  Receipt Date: 20210703
  Transmission Date: 20211014
  Serious: Yes (Hospitalization)
  Sender: FDA-Public Use
  Company Number: DE-TEVA-2021-DE-1928396

PATIENT
  Age: 69 Year
  Sex: Male
  Weight: 105 kg

DRUGS (9)
  1. TORASEMID [Suspect]
     Active Substance: TORSEMIDE
     Dosage: .5 DOSAGE FORMS DAILY; 50 MG, 0.5?0?0?0,
     Route: 048
  2. MIRTAZAPIN [Concomitant]
     Active Substance: MIRTAZAPINE
     Dosage: 15 MILLIGRAM DAILY;   0?0?0?1,
     Route: 048
  3. FEBUXOSTAT. [Concomitant]
     Active Substance: FEBUXOSTAT
     Dosage: 80 MILLIGRAM DAILY;   0?0?1?0,
     Route: 048
  4. LEVOTHYROXIN?NATRIUM [Concomitant]
     Active Substance: LEVOTHYROXINE SODIUM
     Dosage: 10 MICROGRAM DAILY;  1?0?0?0,
     Route: 048
  5. SACUBITRIL/VALSARTAN [Suspect]
     Active Substance: SACUBITRIL\VALSARTAN
     Dosage: 2 DOSAGE FORMS DAILY; 51|49 MG, 1?0?1?0,
     Route: 048
  6. INSULIN GLARGIN [Concomitant]
     Active Substance: INSULIN GLARGINE
     Dosage: 10 IU (INTERNATIONAL UNIT) DAILY;   0?0?1?0,
     Route: 058
  7. DIGITOXIN [Suspect]
     Active Substance: DIGITOXIN
     Dosage: .07 MILLIGRAM DAILY;   1?0?0?0,
     Route: 048
  8. XIPAMID [Suspect]
     Active Substance: XIPAMIDE
     Dosage: 20 MILLIGRAM DAILY;  1?0?0?0,
     Route: 048
  9. APIXABAN [Concomitant]
     Active Substance: APIXABAN
     Dosage: 5 MILLIGRAM DAILY;  1?0?1?0
     Route: 048

REACTIONS (4)
  - Diarrhoea [Unknown]
  - General physical health deterioration [Unknown]
  - Restlessness [Unknown]
  - Dyspnoea [Unknown]
